FAERS Safety Report 15066737 (Version 2)
Quarter: 2018Q3

REPORT INFORMATION
  Report Type: Spontaneous
  Country: ZA (occurrence: ZA)
  Receive Date: 20180626
  Receipt Date: 20180702
  Transmission Date: 20181010
  Serious: Yes (Other)
  Sender: FDA-Public Use
  Company Number: ZA-PFIZER INC-2018255536

PATIENT
  Age: 55 Year
  Sex: Female

DRUGS (10)
  1. ESPIRIDE [Suspect]
     Active Substance: SULPIRIDE
     Dosage: UNK
  2. CILIFT [Suspect]
     Active Substance: CITALOPRAM HYDROBROMIDE
     Dosage: UNK
  3. XANOR [Suspect]
     Active Substance: ALPRAZOLAM
     Dosage: UNK
  4. MAXALT RAPIDISC [Suspect]
     Active Substance: RIZATRIPTAN BENZOATE
     Dosage: UNK
  5. BROMAZEPAM SANDOZ [Suspect]
     Active Substance: BROMAZEPAM
     Dosage: UNK
  6. STILPANE (CAFFEINE\CODEINE PHOSPHATE\MEPROBAMATE\PARACETAMOL) [Suspect]
     Active Substance: ACETAMINOPHEN\CAFFEINE\CODEINE PHOSPHATE\MEPROBAMATE
     Dosage: UNK
  7. NEXMEZOL [Suspect]
     Active Substance: ESOMEPRAZOLE MAGNESIUM
     Dosage: UNK
  8. TREPILINE [Suspect]
     Active Substance: AMITRIPTYLINE
     Dosage: UNK
  9. STILNOX [Suspect]
     Active Substance: ZOLPIDEM TARTRATE
     Dosage: UNK
  10. DORMICUM (NITRAZEPAM) [Suspect]
     Active Substance: NITRAZEPAM
     Dosage: UNK

REACTIONS (3)
  - Hypoacusis [Unknown]
  - Pneumonia [Unknown]
  - Disease recurrence [Unknown]
